FAERS Safety Report 23199723 (Version 1)
Quarter: 2023Q4

REPORT INFORMATION
  Report Type: Spontaneous
  Country: US (occurrence: US)
  Receive Date: 20231117
  Receipt Date: 20231117
  Transmission Date: 20240110
  Serious: No
  Sender: FDA-Public Use
  Company Number: US-Stemline Therapeutics, Inc.-2023ST003067

PATIENT
  Age: 81 Year
  Sex: Female

DRUGS (22)
  1. ORSERDU [Suspect]
     Active Substance: ELACESTRANT
     Indication: Product used for unknown indication
     Dosage: 345MG ONCE DAILY.
     Route: 048
     Dates: start: 202306
  2. ALLOPURINOL [Concomitant]
     Active Substance: ALLOPURINOL
  3. CEFUROXIME [Concomitant]
     Active Substance: CEFUROXIME
  4. COENZYME Q10 [Concomitant]
     Active Substance: DIETARY SUPPLEMENT\UBIDECARENONE
  5. COLCHICINE [Concomitant]
     Active Substance: COLCHICINE
  6. CRESTOR [Concomitant]
     Active Substance: ROSUVASTATIN CALCIUM
  7. ELIQUIS [Concomitant]
     Active Substance: APIXABAN
  8. ENHERTU [Concomitant]
     Active Substance: FAM-TRASTUZUMAB DERUXTECAN-NXKI
  9. FUROSEMIDE [Concomitant]
     Active Substance: FUROSEMIDE
  10. LIDOCAINE [Concomitant]
     Active Substance: LIDOCAINE
  11. PRILOCAINE [Concomitant]
     Active Substance: PRILOCAINE
  12. LISINOPRIL [Concomitant]
     Active Substance: LISINOPRIL
  13. LOTEMAX [Concomitant]
     Active Substance: LOTEPREDNOL ETABONATE
  14. MEGESTROL [Concomitant]
     Active Substance: MEGESTROL
  15. MEMANTINE [Concomitant]
     Active Substance: MEMANTINE
  16. METOPROLOL [Concomitant]
     Active Substance: METOPROLOL
  17. ONDANSETRON [Concomitant]
     Active Substance: ONDANSETRON
  18. POLYTRIM [Concomitant]
     Active Substance: POLYMYXIN B SULFATE\TRIMETHOPRIM SULFATE
  19. PROCHLORPERAZINE [Concomitant]
     Active Substance: PROCHLORPERAZINE
  20. RESTASIS [Concomitant]
     Active Substance: CYCLOSPORINE
  21. TEMAZEPAM [Concomitant]
     Active Substance: TEMAZEPAM
  22. TRIAMCINOLONE [Concomitant]
     Active Substance: TRIAMCINOLONE

REACTIONS (1)
  - Urinary tract infection [Unknown]
